FAERS Safety Report 20009150 (Version 2)
Quarter: 2021Q4

REPORT INFORMATION
  Report Type: Report from Study
  Country: CA (occurrence: CA)
  Receive Date: 20211029
  Receipt Date: 20211108
  Transmission Date: 20220303
  Serious: Yes (Other)
  Sender: FDA-Public Use
  Company Number: CA-ABBVIE-21K-028-4110570-00

PATIENT
  Sex: Female

DRUGS (1)
  1. HUMIRA [Suspect]
     Active Substance: ADALIMUMAB
     Indication: Rheumatoid arthritis
     Route: 058
     Dates: start: 20101223

REACTIONS (10)
  - Knee operation [Unknown]
  - Knee operation [Unknown]
  - Intentional self-injury [Unknown]
  - Asthma [Recovered/Resolved]
  - Gait disturbance [Unknown]
  - Gait disturbance [Unknown]
  - Contusion [Unknown]
  - Hyperaesthesia [Unknown]
  - Fatigue [Unknown]
  - Bronchitis [Unknown]

NARRATIVE: CASE EVENT DATE: 20140101
